FAERS Safety Report 8920241 (Version 1)
Quarter: 2012Q4

REPORT INFORMATION
  Report Type: 
  Country: PL (occurrence: PL)
  Receive Date: 20121122
  Receipt Date: 20121122
  Transmission Date: 20130627
  Serious: Yes (Death, Other)
  Sender: FDA-Public Use
  Company Number: PHHY2012PL105387

PATIENT
  Sex: Male

DRUGS (1)
  1. NILOTINIB [Suspect]
     Dosage: 800 mg, UNK
     Dates: start: 20120724, end: 20120824

REACTIONS (7)
  - Death [Fatal]
  - General physical health deterioration [Unknown]
  - Lung neoplasm malignant [Unknown]
  - Second primary malignancy [Unknown]
  - Metastases to central nervous system [Unknown]
  - Nervous system disorder [Unknown]
  - Diarrhoea [Unknown]
